FAERS Safety Report 7520737-5 (Version None)
Quarter: 2011Q2

REPORT INFORMATION
  Report Type: 
  Country: None (occurrence: None)
  Receive Date: 20110603
  Receipt Date: 20100810
  Transmission Date: 20111010
  Serious: Yes (Hospitalization, Other)
  Sender: FDA-Public Use
  Company Number: US-BAYER-200937696NA

PATIENT
  Age: 19 Year
  Sex: Female
  Weight: 100 kg

DRUGS (4)
  1. NAPROXEN (ALEVE) [Concomitant]
  2. VICODIN [Concomitant]
     Dates: start: 20090701
  3. YASMIN [Suspect]
     Indication: CONTRACEPTION
     Route: 048
     Dates: start: 20080701, end: 20081001
  4. YAZ [Suspect]
     Indication: PRODUCT USED FOR UNKNOWN INDICATION
     Dates: start: 20080701, end: 20081001

REACTIONS (7)
  - LIVER DISORDER [None]
  - PANCREATITIS [None]
  - CHOLELITHIASIS [None]
  - ABDOMINAL PAIN [None]
  - CHOLECYSTITIS [None]
  - NAUSEA [None]
  - TRANSAMINASES INCREASED [None]
